FAERS Safety Report 10039260 (Version 1)
Quarter: 2014Q1

REPORT INFORMATION
  Report Type: Spontaneous
  Country: BR (occurrence: BR)
  Receive Date: 20140326
  Receipt Date: 20140326
  Transmission Date: 20141002
  Serious: Yes (Hospitalization, Other)
  Sender: FDA-Public Use
  Company Number: PHHY2014BR034891

PATIENT
  Age: 60 Year
  Sex: Male
  Weight: 97 kg

DRUGS (1)
  1. TRILEPTAL [Suspect]
     Indication: VENOUS ANGIOMA OF BRAIN
     Dosage: 1 TABLET (600MG) AT NIGHT
     Route: 048

REACTIONS (1)
  - Infarction [Recovered/Resolved]
